FAERS Safety Report 19985350 (Version 19)
Quarter: 2023Q4

REPORT INFORMATION
  Report Type: Report from Study
  Country: CA (occurrence: CA)
  Receive Date: 20211022
  Receipt Date: 20231110
  Transmission Date: 20240110
  Serious: Yes (Disabling, Other)
  Sender: FDA-Public Use
  Company Number: CA-OTSUKA-2021_010904

PATIENT
  Age: 40 Year
  Sex: Female

DRUGS (6)
  1. ARIPIPRAZOLE [Suspect]
     Active Substance: ARIPIPRAZOLE
     Indication: Product used for unknown indication
     Dosage: 300 MG Q 4 WEEKS
     Route: 030
  2. ARIPIPRAZOLE [Suspect]
     Active Substance: ARIPIPRAZOLE
     Dosage: 300 MG Q 4 WEEKS
     Route: 030
     Dates: start: 20210225
  3. ARIPIPRAZOLE [Suspect]
     Active Substance: ARIPIPRAZOLE
     Dosage: 300 MG, EVERY 3 WEEKS
     Route: 030
     Dates: start: 20200521
  4. ARIPIPRAZOLE [Suspect]
     Active Substance: ARIPIPRAZOLE
     Dosage: 400 MG EVERY 3 WEEKS
     Route: 030
     Dates: start: 20200521
  5. ARIPIPRAZOLE [Suspect]
     Active Substance: ARIPIPRAZOLE
     Dosage: 400 MG EVERY 3 WEEKS
     Route: 030
  6. ARIPIPRAZOLE [Suspect]
     Active Substance: ARIPIPRAZOLE
     Indication: Product used for unknown indication
     Dosage: UNK
     Route: 065

REACTIONS (24)
  - Asthma [Unknown]
  - Hallucination, visual [Unknown]
  - Hallucination, auditory [Unknown]
  - Skin haemorrhage [Recovered/Resolved]
  - Decreased interest [Unknown]
  - Soliloquy [Unknown]
  - Fear [Unknown]
  - Paranoia [Recovered/Resolved]
  - Taciturnity [Unknown]
  - Malaise [Recovered/Resolved]
  - Sleep disorder [Unknown]
  - Depression [Unknown]
  - Restlessness [Unknown]
  - Anxiety [Unknown]
  - Fatigue [Unknown]
  - Weight decreased [Unknown]
  - Insomnia [Unknown]
  - Somnolence [Unknown]
  - Inappropriate schedule of product administration [Unknown]
  - Underdose [Unknown]
  - Product dose omission issue [Unknown]
  - Inappropriate schedule of product administration [Unknown]
  - Intentional dose omission [Unknown]
  - Product availability issue [Unknown]

NARRATIVE: CASE EVENT DATE: 20210716
